FAERS Safety Report 5308001-6 (Version None)
Quarter: 2007Q2

REPORT INFORMATION
  Report Type: 
  Country: None (occurrence: None)
  Receive Date: 20070426
  Receipt Date: 20070423
  Transmission Date: 20071010
  Serious: Yes (Other)
  Sender: FDA-Public Use
  Company Number: US-BAYER-200710698BCC

PATIENT
  Sex: Female
  Weight: 54 kg

DRUGS (4)
  1. ALKA SELTZER PLUS [Suspect]
     Indication: NASAL CONGESTION
     Route: 048
  2. ALKA SELTZER PLUS FLU [Suspect]
     Indication: NASAL CONGESTION
     Route: 048
  3. ALKA SELTZER PLUS DAY [Suspect]
     Indication: DRUG USE FOR UNKNOWN INDICATION
     Route: 048
  4. ALKA SELTZER PLUS NIGHT [Suspect]
     Indication: DRUG USE FOR UNKNOWN INDICATION
     Route: 048

REACTIONS (1)
  - BRAIN SCAN ABNORMAL [None]
